APPROVED DRUG PRODUCT: ERMEZA
Active Ingredient: LEVOTHYROXINE SODIUM
Strength: 150MCG/5ML
Dosage Form/Route: SOLUTION;ORAL
Application: N215809 | Product #001
Applicant: MYLAN PHARMACEUTICALS INC
Approved: Apr 29, 2022 | RLD: Yes | RS: Yes | Type: RX

PATENTS:
Patent 9345772 | Expires: Feb 27, 2035